FAERS Safety Report 5243152-6 (Version None)
Quarter: 2007Q1

REPORT INFORMATION
  Report Type: 
  Country: None (occurrence: None)
  Receive Date: 20070221
  Receipt Date: 20070209
  Transmission Date: 20070707
  Serious: Yes (Death)
  Sender: FDA-Public Use
  Company Number: BE-PFIZER INC-2007012525

PATIENT

DRUGS (4)
  1. SERTRALINE [Suspect]
  2. ALPRAZOLAM [Suspect]
  3. CLONAZEPAM [Suspect]
  4. METHADONE HCL [Suspect]

REACTIONS (1)
  - DRUG TOXICITY [None]
